FAERS Safety Report 18920255 (Version 1)
Quarter: 2021Q1

REPORT INFORMATION
  Report Type: Other
  Country: CA (occurrence: CA)
  Receive Date: 20210222
  Receipt Date: 20210222
  Transmission Date: 20210420
  Serious: Yes (Other)
  Sender: FDA-Public Use
  Company Number: CA-CELLTRION INC.-2021CA002010

PATIENT

DRUGS (21)
  1. HYDROXYCHLOROQUINE SULFATE. [Concomitant]
     Active Substance: HYDROXYCHLOROQUINE SULFATE
  2. OXYCODONE [Concomitant]
     Active Substance: OXYCODONE
  3. DESOXIMETASONE. [Concomitant]
     Active Substance: DESOXIMETASONE
  4. ACETAMINOPHEN. [Concomitant]
     Active Substance: ACETAMINOPHEN
     Indication: PREMEDICATION
     Dosage: 650.0 MILLIGRAM
     Route: 048
  5. DIPHENHYDRAMINE. [Concomitant]
     Active Substance: DIPHENHYDRAMINE
  6. LOSEC [Concomitant]
     Active Substance: OMEPRAZOLE
  7. METHYLPREDNISOLONE SODIUM SUCCINATE. [Concomitant]
     Active Substance: METHYLPREDNISOLONE SODIUM SUCCINATE
  8. SOLU?CORTEF [Concomitant]
     Active Substance: HYDROCORTISONE SODIUM SUCCINATE
     Indication: PREMEDICATION
     Dosage: 100.0 MILLIGRAM
     Route: 042
  9. TYLENOL [Concomitant]
     Active Substance: ACETAMINOPHEN
  10. RITUXIMAB (UNKNOWN) [Suspect]
     Active Substance: RITUXIMAB
     Indication: RHEUMATOID ARTHRITIS
     Dosage: 1000.0 MILLIGRAM
     Route: 042
  11. ACETAMINOPHEN. [Concomitant]
     Active Substance: ACETAMINOPHEN
     Indication: PREMEDICATION
     Dosage: 1000.0 MILLIGRAM
     Route: 048
  12. CALCIUM [Concomitant]
     Active Substance: CALCIUM
  13. RAMIPRIL. [Suspect]
     Active Substance: RAMIPRIL
     Indication: HYPERTENSION
     Route: 065
  14. CELEBREX [Concomitant]
     Active Substance: CELECOXIB
  15. PERINDOPRIL [Concomitant]
     Active Substance: PERINDOPRIL
  16. VITAMIN D3 [Concomitant]
     Active Substance: CHOLECALCIFEROL
  17. RITUXIMAB (UNKNOWN) [Suspect]
     Active Substance: RITUXIMAB
     Dosage: UNK
     Route: 042
  18. LIPITOR [Concomitant]
     Active Substance: ATORVASTATIN CALCIUM
     Route: 065
  19. ESOMEPRAZOLE. [Concomitant]
     Active Substance: ESOMEPRAZOLE MAGNESIUM
  20. GLUCOSAMINE SULFATE [Concomitant]
     Active Substance: GLUCOSAMINE SULFATE
  21. PREDNISONE. [Concomitant]
     Active Substance: PREDNISONE

REACTIONS (11)
  - Blood pressure diastolic abnormal [Unknown]
  - Fall [Unknown]
  - Hypertension [Unknown]
  - Injection site extravasation [Unknown]
  - Dizziness [Unknown]
  - Drug intolerance [Unknown]
  - Ligament sprain [Unknown]
  - Blood pressure increased [Unknown]
  - Injection site swelling [Unknown]
  - Arthropathy [Unknown]
  - Blood pressure systolic abnormal [Unknown]
